FAERS Safety Report 15278554 (Version 2)
Quarter: 2019Q2

REPORT INFORMATION
  Report Type: Spontaneous
  Country: US (occurrence: US)
  Receive Date: 20180815
  Receipt Date: 20190510
  Transmission Date: 20190711
  Serious: Yes (Life-Threatening, Hospitalization, Other)
  Sender: FDA-Public Use
  Company Number: US-AMGEN-USASP2018110923

PATIENT
  Age: 72 Year
  Sex: Female

DRUGS (2)
  1. PROLIA [Suspect]
     Active Substance: DENOSUMAB
     Indication: BONE DISORDER
  2. PROLIA [Suspect]
     Active Substance: DENOSUMAB
     Indication: OSTEOPOROSIS POSTMENOPAUSAL
     Dosage: UNK UNK, Q6MO
     Route: 065
     Dates: start: 2015

REACTIONS (20)
  - Cancer surgery [Unknown]
  - Neuropathy peripheral [Unknown]
  - Neck pain [Unknown]
  - Pain [Not Recovered/Not Resolved]
  - Asthenia [Unknown]
  - Coma [Unknown]
  - Muscle spasms [Unknown]
  - Joint noise [Not Recovered/Not Resolved]
  - Joint dislocation [Unknown]
  - Headache [Unknown]
  - Sleep disorder due to general medical condition, insomnia type [Recovered/Resolved]
  - Hypoaesthesia [Not Recovered/Not Resolved]
  - Skin disorder [Unknown]
  - Visual impairment [Unknown]
  - Dizziness [Not Recovered/Not Resolved]
  - Fatigue [Unknown]
  - Diabetes insipidus [Unknown]
  - Body height decreased [Not Recovered/Not Resolved]
  - Nephrolithiasis [Unknown]
  - Arthralgia [Unknown]

NARRATIVE: CASE EVENT DATE: 2017
